FAERS Safety Report 13061783 (Version 1)
Quarter: 2016Q4

REPORT INFORMATION
  Report Type: Spontaneous
  Country: US (occurrence: US)
  Receive Date: 20161226
  Receipt Date: 20161226
  Transmission Date: 20170207
  Serious: Yes (Other)
  Sender: FDA-Public Use
  Company Number: US-AUROBINDO-AUR-APL-2016-15665

PATIENT
  Age: 26 Year
  Sex: Female

DRUGS (1)
  1. PHENYTOIN 100MG [Suspect]
     Active Substance: PHENYTOIN
     Indication: SEIZURE
     Dosage: 100 MG, 3 TIMES A DAY
     Route: 065

REACTIONS (3)
  - Toxicity to various agents [Unknown]
  - Condition aggravated [Unknown]
  - Seizure [Unknown]
